FAERS Safety Report 16707526 (Version 1)
Quarter: 2019Q3

REPORT INFORMATION
  Report Type: Spontaneous
  Country: US (occurrence: US)
  Receive Date: 20190701
  Receipt Date: 20190701
  Transmission Date: 20191004
  Serious: No
  Sender: FDA-Public Use
  Company Number: None

PATIENT
  Age: 61 Year
  Sex: Female

DRUGS (1)
  1. BOTOX [Suspect]
     Active Substance: ONABOTULINUMTOXINA
     Dosage: ?          OTHER FREQUENCY:OTHER;?
     Route: 030
     Dates: start: 201901

REACTIONS (2)
  - Product communication issue [None]
  - Product dispensing error [None]

NARRATIVE: CASE EVENT DATE: 20190117
